FAERS Safety Report 9238401 (Version 1)
Quarter: 2013Q2

REPORT INFORMATION
  Report Type: Spontaneous
  Country: US (occurrence: None)
  Receive Date: 20130416
  Receipt Date: 20130416
  Transmission Date: 20140414
  Serious: Yes (Other)
  Sender: FDA-Public Use
  Company Number: ADR-2013-00638

PATIENT
  Sex: Male

DRUGS (1)
  1. BACLOFEN INTRATHECAL [Suspect]
     Indication: MUSCLE SPASTICITY

REACTIONS (6)
  - Back pain [None]
  - Arthralgia [None]
  - Neuropathy peripheral [None]
  - Arthralgia [None]
  - Vomiting [None]
  - Gait disturbance [None]
